FAERS Safety Report 11883168 (Version 1)
Quarter: 2015Q4

REPORT INFORMATION
  Report Type: Report from Study
  Country: JP (occurrence: JP)
  Receive Date: 20151231
  Receipt Date: 20151231
  Transmission Date: 20160305
  Serious: Yes (Death, Life-Threatening, Other)
  Sender: FDA-Public Use
  Company Number: JP-BRISTOL-MYERS SQUIBB COMPANY-BMS-1527-000001

PATIENT
  Age: 43 Year
  Sex: Female

DRUGS (11)
  1. NIVOLUMAB [Suspect]
     Active Substance: NIVOLUMAB
     Indication: MALIGNANT MELANOMA
     Dosage: 100 MG, UNK
     Route: 065
     Dates: start: 20150216, end: 20150216
  2. NIVOLUMAB [Suspect]
     Active Substance: NIVOLUMAB
     Dosage: UNK
     Route: 042
     Dates: start: 201502, end: 201505
  3. NIVOLUMAB [Suspect]
     Active Substance: NIVOLUMAB
     Dosage: 100 MG, UNK
     Route: 065
  4. METHYLPREDNISOLONE. [Concomitant]
     Active Substance: METHYLPREDNISOLONE
     Indication: PRODUCT USED FOR UNKNOWN INDICATION
     Dosage: 40 MG, UNK
     Route: 065
     Dates: start: 20150520
  5. NIVOLUMAB [Suspect]
     Active Substance: NIVOLUMAB
     Dosage: 100 MG, UNK
     Route: 065
  6. PREDONINE [Concomitant]
     Active Substance: PREDNISOLONE\PREDNISOLONE ACETATE\PREDNISOLONE SODIUM SUCCINATE
     Indication: PRODUCT USED FOR UNKNOWN INDICATION
     Route: 065
  7. NIVOLUMAB [Suspect]
     Active Substance: NIVOLUMAB
     Dosage: 100 MG, UNK
     Route: 065
     Dates: start: 20150518
  8. NIVOLUMAB [Suspect]
     Active Substance: NIVOLUMAB
     Dosage: 100 MG, UNK
     Route: 065
  9. MEROPEN                            /01250501/ [Concomitant]
     Active Substance: MEROPENEM
     Indication: PRODUCT USED FOR UNKNOWN INDICATION
     Route: 065
  10. METHYLPREDNISOLONE. [Concomitant]
     Active Substance: METHYLPREDNISOLONE
     Dosage: 30 MG, UNK
     Route: 065
     Dates: start: 20150520
  11. METHYLPREDNISOLONE. [Concomitant]
     Active Substance: METHYLPREDNISOLONE
     Dosage: 5 MG, UNK
     Route: 065
     Dates: start: 20150520

REACTIONS (7)
  - Diarrhoea [Not Recovered/Not Resolved]
  - Malignant neoplasm progression [Fatal]
  - Fungaemia [Not Recovered/Not Resolved]
  - Metastases to central nervous system [Fatal]
  - Rash pruritic [Not Recovered/Not Resolved]
  - Leukoderma [Not Recovered/Not Resolved]
  - Thyroid disorder [Recovered/Resolved]

NARRATIVE: CASE EVENT DATE: 2015
